FAERS Safety Report 9170697 (Version 1)
Quarter: 2013Q1

REPORT INFORMATION
  Report Type: Spontaneous
  Country: US (occurrence: None)
  Receive Date: 20130312
  Receipt Date: 20130312
  Transmission Date: 20140127
  Serious: No
  Sender: FDA-Public Use
  Company Number: ADR-2013-00392

PATIENT
  Sex: Male

DRUGS (1)
  1. BACLOFEN [Suspect]

REACTIONS (7)
  - Device kink [None]
  - Incorrect dose administered by device [None]
  - Overdose [None]
  - Drug withdrawal syndrome [None]
  - Device dislocation [None]
  - Device breakage [None]
  - Scoliosis [None]
